FAERS Safety Report 4562508-8 (Version None)
Quarter: 2005Q1

REPORT INFORMATION
  Report Type: 
  Country: None (occurrence: None)
  Receive Date: 20050112
  Receipt Date: 20050112
  Transmission Date: 20050727
  Serious: Yes (Other)
  Sender: FDA-Public Use
  Company Number: None

PATIENT
  Age: 16 Year
  Sex: Male

DRUGS (1)
  1. DESMOPRESSIN [Suspect]
     Indication: BLOOD ANTIDIURETIC HORMONE DECREASED
     Dosage: 10 MCG IN BID

REACTIONS (5)
  - APPLICATION SITE DISCOMFORT [None]
  - CONDITION AGGRAVATED [None]
  - DRUG EFFECT DECREASED [None]
  - POLYDIPSIA [None]
  - POLYURIA [None]
